FAERS Safety Report 24679425 (Version 1)
Quarter: 2024Q4

REPORT INFORMATION
  Report Type: Spontaneous
  Country: US (occurrence: US)
  Receive Date: 20241129
  Receipt Date: 20241129
  Transmission Date: 20250115
  Serious: Yes (Other)
  Sender: SANOFI AVENTIS
  Company Number: US-SA-2024SA350032

PATIENT
  Sex: Female
  Weight: 73.469 kg

DRUGS (7)
  1. DUPIXENT [Suspect]
     Active Substance: DUPILUMAB
     Indication: Dermatitis atopic
     Dosage: 1 DF, QOW
     Route: 058
  2. TIZANIDINE HYDROCHLORIDE [Concomitant]
     Active Substance: TIZANIDINE HYDROCHLORIDE
  3. MAGNESIUM GLUCONATE [Concomitant]
     Active Substance: MAGNESIUM GLUCONATE
  4. GABAPENTIN [Concomitant]
     Active Substance: GABAPENTIN
  5. MOUNJARO [Concomitant]
     Active Substance: TIRZEPATIDE
  6. PREDNISONE [Concomitant]
     Active Substance: PREDNISONE
  7. TREMFYA [Concomitant]
     Active Substance: GUSELKUMAB

REACTIONS (2)
  - Neuropathy peripheral [Unknown]
  - Inappropriate schedule of product administration [Unknown]
